FAERS Safety Report 4667846-6 (Version None)
Quarter: 2005Q2

REPORT INFORMATION
  Report Type: 
  Country: None (occurrence: None)
  Receive Date: 20050519
  Receipt Date: 20050519
  Transmission Date: 20051028
  Serious: Yes (Hospitalization)
  Sender: FDA-Public Use
  Company Number: None

PATIENT
  Age: 60 Year
  Sex: Male
  Weight: 116.1208 kg

DRUGS (2)
  1. DOCETAXEL [Suspect]
     Indication: SQUAMOUS CELL CARCINOMA
     Dosage: 92 MG   X 1 DOSE   INTRAVENOU
     Route: 042
     Dates: start: 20050427, end: 20050427
  2. GEMCITABINE [Suspect]
     Indication: SQUAMOUS CELL CARCINOMA
     Dosage: 1380 MG     X 1 DOSE    INTRAVENOU
     Route: 042
     Dates: start: 20050427, end: 20050427

REACTIONS (4)
  - DEEP VEIN THROMBOSIS [None]
  - LIVER FUNCTION TEST ABNORMAL [None]
  - PULMONARY EMBOLISM [None]
  - TRACHEOBRONCHITIS [None]
